FAERS Safety Report 8242577-4 (Version None)
Quarter: 2012Q1

REPORT INFORMATION
  Report Type: 
  Country: None (occurrence: None)
  Receive Date: 20120329
  Receipt Date: 20120323
  Transmission Date: 20120608
  Serious: Yes (Other)
  Sender: FDA-Public Use
  Company Number: PHEH2012US006364

PATIENT
  Sex: Female
  Weight: 96.599 kg

DRUGS (2)
  1. RECLAST [Suspect]
     Indication: OSTEOPOROSIS
     Dosage: 5 MG (1 PER YEAR)
     Route: 042
     Dates: start: 20110314
  2. RECLAST [Suspect]
     Dosage: 5 MG (1 PER YEAR)
     Route: 042
     Dates: start: 20120316

REACTIONS (5)
  - HEADACHE [None]
  - CONVULSION [None]
  - DIARRHOEA [None]
  - INJECTION SITE SWELLING [None]
  - BACK PAIN [None]
